FAERS Safety Report 8796913 (Version 3)
Quarter: 2013Q1

REPORT INFORMATION
  Report Type: Spontaneous
  Country: US (occurrence: US)
  Receive Date: 20120920
  Receipt Date: 20130311
  Transmission Date: 20140127
  Serious: Yes (Disabling, Other)
  Sender: FDA-Public Use
  Company Number: US-US-EMD SERONO, INC.-7160980

PATIENT
  Sex: Female
  Weight: 87 kg

DRUGS (2)
  1. REBIF [Suspect]
     Indication: MULTIPLE SCLEROSIS
     Route: 058
     Dates: start: 20070625, end: 20100725
  2. REBIF [Suspect]
     Route: 058
     Dates: start: 20110318

REACTIONS (4)
  - Carpal tunnel syndrome [Unknown]
  - Calcinosis [Unknown]
  - Deafness [Unknown]
  - Chondrosis [Unknown]
